FAERS Safety Report 11597116 (Version 1)
Quarter: 2015Q4

REPORT INFORMATION
  Report Type: Spontaneous
  Country: US (occurrence: None)
  Receive Date: 20151005
  Receipt Date: 20151005
  Transmission Date: 20160304
  Serious: Yes (Life-Threatening, Hospitalization, Disabling, Other)
  Sender: FDA-Public Use
  Company Number: None

PATIENT
  Age: 17 Year
  Sex: Female

DRUGS (1)
  1. DEPO-PROVERA [Suspect]
     Active Substance: MEDROXYPROGESTERONE ACETATE

REACTIONS (8)
  - Polycystic ovaries [None]
  - Impaired work ability [None]
  - Dizziness [None]
  - Loss of consciousness [None]
  - Infertility female [None]
  - Menorrhagia [None]
  - Malaise [None]
  - Infection [None]

NARRATIVE: CASE EVENT DATE: 20100521
